FAERS Safety Report 9820182 (Version 1)
Quarter: 2013Q4

REPORT INFORMATION
  Report Type: Spontaneous
  Country: US (occurrence: None)
  Receive Date: 20131223
  Receipt Date: 20131223
  Transmission Date: 20140711
  Serious: No
  Sender: FDA-Public Use
  Company Number: 220871

PATIENT
  Sex: Female

DRUGS (1)
  1. PICATO [Suspect]
     Indication: PRODUCT USED FOR UNKNOWN INDICATION
     Dosage: GEL, DAILY FOR 3 DAYS, TOPICAL

REACTIONS (2)
  - Application site vesicles [None]
  - Wrong technique in drug usage process [None]
